FAERS Safety Report 19681507 (Version 1)
Quarter: 2021Q3

REPORT INFORMATION
  Report Type: Spontaneous
  Country: US (occurrence: US)
  Receive Date: 20210810
  Receipt Date: 20210810
  Transmission Date: 20211014
  Serious: No
  Sender: FDA-Public Use
  Company Number: US-ECOLAB-2021-US-008875

PATIENT
  Age: 59 Year
  Sex: Female
  Weight: 72.12 kg

DRUGS (1)
  1. SCRUB?STAT [Suspect]
     Active Substance: CHLORHEXIDINE GLUCONATE
     Indication: ACCIDENTAL EXPOSURE TO PRODUCT
     Dosage: UNKNOWN
     Route: 048
     Dates: start: 20210424, end: 20210424

REACTIONS (5)
  - Nausea [Recovered/Resolved]
  - Off label use [Recovered/Resolved]
  - Intentional product misuse [Recovered/Resolved]
  - Anxiety [Unknown]
  - Heart rate increased [Unknown]

NARRATIVE: CASE EVENT DATE: 20210425
